FAERS Safety Report 9219520 (Version 2)
Quarter: 2018Q1

REPORT INFORMATION
  Report Type: Spontaneous
  Country: US (occurrence: US)
  Receive Date: 20130409
  Receipt Date: 20180101
  Transmission Date: 20180509
  Serious: Yes (Hospitalization, Other)
  Sender: FDA-Public Use
  Company Number: US-009507513-1304USA001081

PATIENT
  Sex: Female

DRUGS (3)
  1. ALENDRONATE SODIUM. [Suspect]
     Active Substance: ALENDRONATE SODIUM
     Indication: PRODUCT USED FOR UNKNOWN INDICATION
     Dosage: UNK
     Route: 065
     Dates: start: 2001, end: 201103
  2. FOSAMAX [Suspect]
     Active Substance: ALENDRONATE SODIUM
     Indication: PRODUCT USED FOR UNKNOWN INDICATION
     Dosage: 70 MG, QW
     Route: 048
     Dates: start: 20010205, end: 201103
  3. ALENDRONATE SODIUM. [Suspect]
     Active Substance: ALENDRONATE SODIUM
     Indication: PRODUCT USED FOR UNKNOWN INDICATION
     Dosage: 70 MG, UNK
     Route: 065
     Dates: start: 20100312, end: 201007

REACTIONS (26)
  - Blister [Recovered/Resolved]
  - Fracture nonunion [Recovered/Resolved]
  - Musculoskeletal stiffness [Unknown]
  - Osteomalacia [Unknown]
  - Osteoporosis [Unknown]
  - Arthralgia [Unknown]
  - Rhinitis allergic [Unknown]
  - Type IIa hyperlipidaemia [Unknown]
  - Rheumatoid arthritis [Unknown]
  - Abdominal pain [Unknown]
  - Femur fracture [Recovering/Resolving]
  - Headache [Unknown]
  - Performance status decreased [Unknown]
  - Sinus disorder [Unknown]
  - Haemorrhagic anaemia [Unknown]
  - Vision blurred [Unknown]
  - Nausea [Unknown]
  - Hypercalcaemia [Unknown]
  - Phonophobia [Unknown]
  - Fall [Unknown]
  - Femur fracture [Unknown]
  - Dizziness [Unknown]
  - Cataract subcapsular [Unknown]
  - Hypertension [Unknown]
  - Nausea [Unknown]
  - Glomerulonephritis [Unknown]

NARRATIVE: CASE EVENT DATE: 2011
